FAERS Safety Report 8036103-2 (Version None)
Quarter: 2012Q1

REPORT INFORMATION
  Report Type: 
  Country: None (occurrence: None)
  Receive Date: 20120106
  Receipt Date: 20111223
  Transmission Date: 20120608
  Serious: Yes (Death)
  Sender: FDA-Public Use
  Company Number: 2011SP060235

PATIENT
  Age: 63 Year
  Sex: Male
  Weight: 130 kg

DRUGS (4)
  1. ABILIFY [Concomitant]
  2. SYCREST (ASENAPINE /05706901/) (10 MG) [Suspect]
     Indication: BIPOLAR DISORDER
     Dosage: 20 MG;QD;SL
     Route: 060
     Dates: start: 20111214
  3. TEGRETOL [Concomitant]
  4. LORMETAZEPAM [Concomitant]

REACTIONS (1)
  - DEATH [None]
